FAERS Safety Report 5093111-1 (Version None)
Quarter: 2006Q3

REPORT INFORMATION
  Report Type: 
  Country: None (occurrence: None)
  Receive Date: 20060828
  Receipt Date: 20060810
  Transmission Date: 20061208
  Serious: Yes (Hospitalization, Disabling)
  Sender: FDA-Public Use
  Company Number: TRP_0852_2006

PATIENT
  Age: 38 Year
  Sex: Male
  Weight: 95.2554 kg

DRUGS (8)
  1. RIBASPHERE [Suspect]
     Indication: HEPATITIS C
     Dosage: VAR BID PO
     Route: 048
     Dates: start: 20060427, end: 20060601
  2. PEG-INTRON [Suspect]
     Indication: HEPATITIS C
     Dosage: 0.5 ML QWK SC
     Route: 058
     Dates: start: 20060427, end: 20060601
  3. CARAFATE [Concomitant]
  4. LASIX [Concomitant]
  5. NADOLOL [Concomitant]
  6. FOLIC ACID [Concomitant]
  7. PREVACID [Concomitant]
  8. SPIRONOLACTONE [Concomitant]

REACTIONS (10)
  - BLISTER [None]
  - CHEST PAIN [None]
  - CHOLELITHIASIS [None]
  - FLUID RETENTION [None]
  - INCISION SITE COMPLICATION [None]
  - INCISION SITE ERYTHEMA [None]
  - LOCAL SWELLING [None]
  - OEDEMA PERIPHERAL [None]
  - SURGICAL PROCEDURE REPEATED [None]
  - WHITE BLOOD CELL COUNT DECREASED [None]
